FAERS Safety Report 20682476 (Version 1)
Quarter: 2022Q2

REPORT INFORMATION
  Report Type: Spontaneous
  Country: US (occurrence: US)
  Receive Date: 20220407
  Receipt Date: 20220407
  Transmission Date: 20220721
  Serious: Yes (Life-Threatening, Hospitalization, Other)
  Sender: FDA-Public Use
  Company Number: US-CIPLA LTD.-2022US02116

PATIENT

DRUGS (1)
  1. AMLODIPINE [Suspect]
     Active Substance: AMLODIPINE BESYLATE
     Dosage: 10 MILLIGRAM (10 MG TABLETS X 100)
     Route: 048

REACTIONS (8)
  - Intentional overdose [Unknown]
  - Toxicity to various agents [Recovered/Resolved]
  - Acute respiratory failure [Recovered/Resolved]
  - Hyperdynamic left ventricle [Recovered/Resolved]
  - Blood creatinine increased [Recovered/Resolved]
  - Blood lactic acid increased [Recovered/Resolved]
  - Shock [Recovered/Resolved]
  - Pulmonary oedema [Recovered/Resolved]
